FAERS Safety Report 12927109 (Version 1)
Quarter: 2016Q4

REPORT INFORMATION
  Report Type: Spontaneous
  Country: US (occurrence: US)
  Receive Date: 20161109
  Receipt Date: 20161109
  Transmission Date: 20170207
  Serious: Yes (Hospitalization)
  Sender: FDA-Public Use
  Company Number: None

PATIENT
  Age: 8 Year
  Sex: Female
  Weight: 23.7 kg

DRUGS (6)
  1. VINCRISTINE SULFATE. [Suspect]
     Active Substance: VINCRISTINE SULFATE
     Dates: end: 20160708
  2. ETOPOSIDE (VP-16) [Suspect]
     Active Substance: ETOPOSIDE
     Dates: end: 20160721
  3. ONCASPAR [Suspect]
     Active Substance: PEGASPARGASE
     Dates: end: 20160715
  4. CYCLOPHOSPHAMIDE. [Suspect]
     Active Substance: CYCLOPHOSPHAMIDE
     Dates: end: 20160721
  5. METHOTREXATE. [Suspect]
     Active Substance: METHOTREXATE
     Dosage: 12 MG METHOTREXATE GIVEN ON 7/14/16 950MG ID?
     Dates: end: 20160714
  6. DEXAMETHASONE. [Suspect]
     Active Substance: DEXAMETHASONE
     Dates: end: 20160713

REACTIONS (16)
  - Petechiae [None]
  - Urinary tract infection [None]
  - Tachycardia [None]
  - Mucosal inflammation [None]
  - Stomatitis [None]
  - Escherichia bacteraemia [None]
  - Escherichia test positive [None]
  - Klebsiella infection [None]
  - Pyrexia [None]
  - Thrombocytopenia [None]
  - Tachypnoea [None]
  - Mouth swelling [None]
  - Neutropenia [None]
  - Urine ketone body present [None]
  - Nitrite urine present [None]
  - Fluid overload [None]

NARRATIVE: CASE EVENT DATE: 20160731
